FAERS Safety Report 5558711-0 (Version None)
Quarter: 2007Q4

REPORT INFORMATION
  Report Type: 
  Country: None (occurrence: None)
  Receive Date: 20071214
  Receipt Date: 20070831
  Transmission Date: 20080405
  Serious: No
  Sender: FDA-Public Use
  Company Number: US-ABBOTT-07P-163-0416348-00

PATIENT
  Sex: Female
  Weight: 59.02 kg

DRUGS (6)
  1. HUMIRA [Suspect]
     Indication: RHEUMATOID ARTHRITIS
     Dosage: SYRINGE
     Route: 058
     Dates: start: 20040101, end: 20070101
  2. HUMIRA [Suspect]
     Dosage: PEN
     Route: 058
     Dates: start: 20070101
  3. IBUPROFEN [Concomitant]
     Indication: ARTHRALGIA
  4. PYLOCARPINE [Concomitant]
     Indication: DRY MOUTH
  5. PREDNISONE [Concomitant]
     Indication: ARTHRITIS
  6. AMOXICILLIN [Concomitant]
     Indication: PROPHYLAXIS

REACTIONS (4)
  - SENSORY DISTURBANCE [None]
  - TOOTH INFECTION [None]
  - UNEVALUABLE EVENT [None]
  - VERTIGO [None]
